FAERS Safety Report 6941933-1 (Version None)
Quarter: 2010Q3

REPORT INFORMATION
  Report Type: 
  Country: None (occurrence: None)
  Receive Date: 20100826
  Receipt Date: 20100818
  Transmission Date: 20110219
  Serious: Yes (Death, Hospitalization)
  Sender: FDA-Public Use
  Company Number: JP-JNJFOC-20091008998

PATIENT
  Sex: Female
  Weight: 53 kg

DRUGS (41)
  1. DOXORUBICIN HCL [Suspect]
     Indication: OVARIAN CANCER RECURRENT
     Dosage: CYCLE 2
     Route: 042
  2. DOXORUBICIN HCL [Suspect]
     Dosage: CYCLE 1
     Route: 042
  3. DOXORUBICIN HCL [Suspect]
     Dosage: CYCLE 5
     Route: 042
  4. DOXORUBICIN HCL [Suspect]
     Dosage: CYCLE 3
     Route: 042
  5. DOXORUBICIN HCL [Suspect]
     Dosage: CYCLE 4
     Route: 042
  6. LAXOBERON [Concomitant]
     Indication: CONSTIPATION
     Route: 048
  7. NEUROVITAN [Concomitant]
     Indication: PROPHYLAXIS
     Route: 048
  8. DAI-KENCHU-TO [Concomitant]
     Indication: CONSTIPATION
     Route: 048
  9. LENDORMIN D [Concomitant]
     Indication: INSOMNIA
     Route: 048
  10. LOXONIN [Concomitant]
     Route: 048
  11. POVIDONE IODINE [Concomitant]
     Indication: PROPHYLAXIS
     Route: 049
  12. DEXALTIN [Concomitant]
     Indication: PROPHYLAXIS
     Route: 061
  13. MAGMITT [Concomitant]
     Indication: CONSTIPATION
     Route: 048
  14. NOVAMIN [Concomitant]
     Indication: NAUSEA
     Route: 048
  15. AZUNOL [Concomitant]
     Indication: STOMATITIS
     Route: 049
  16. LECICARBON [Concomitant]
     Route: 054
  17. KINDAVATE [Concomitant]
     Indication: PALMAR-PLANTAR ERYTHRODYSAESTHESIA SYNDROME
     Route: 061
  18. HEPARIN [Concomitant]
     Indication: PALMAR-PLANTAR ERYTHRODYSAESTHESIA SYNDROME
     Route: 061
  19. GASCON [Concomitant]
     Route: 048
  20. CEREKINON [Concomitant]
     Route: 048
  21. DEPAS [Concomitant]
     Indication: INSOMNIA
     Route: 048
  22. DEPAS [Concomitant]
     Route: 048
  23. RINDERON-VG [Concomitant]
     Indication: CATHETER SITE INFLAMMATION
     Route: 061
  24. TAKEPRON [Concomitant]
     Indication: NAUSEA
     Route: 048
  25. BUSCOPAN [Concomitant]
     Indication: INTESTINAL OBSTRUCTION
     Route: 048
  26. SHAKUYAKU-K ANZO-TO [Concomitant]
     Route: 048
  27. HANGE-SHASHIN-TO (CHINESE HERBAL MEDICINE) [Concomitant]
     Route: 048
  28. PAXIL [Concomitant]
     Route: 048
  29. MAXIPIME [Concomitant]
     Indication: INTERSTITIAL LUNG DISEASE
     Route: 042
  30. GRAN [Concomitant]
     Indication: NEUTROPHIL COUNT DECREASED
     Route: 058
  31. IMIPENEM AND CILASTATIN [Concomitant]
     Indication: INTERSTITIAL LUNG DISEASE
     Route: 042
  32. CIPROFLOXACIN HYDROCHLORIDE [Concomitant]
     Indication: NEUTROPHIL COUNT DECREASED
     Route: 042
  33. IMMUNE GLOBULIN INTRAVENOUS (HUMAN) [Concomitant]
     Indication: INTERSTITIAL LUNG DISEASE
     Route: 041
  34. SOLU-MEDROL [Concomitant]
     Indication: INTERSTITIAL LUNG DISEASE
     Route: 042
  35. PREDONINE [Concomitant]
     Indication: INTERSTITIAL LUNG DISEASE
     Route: 042
  36. MORPHINE HYDROCHLORIDE [Concomitant]
     Route: 042
  37. LASIX [Concomitant]
     Indication: INTERSTITIAL LUNG DISEASE
     Route: 042
  38. MEPTIN AIR [Concomitant]
     Indication: INTERSTITIAL LUNG DISEASE
  39. BROCIN CODEINE [Concomitant]
     Indication: INTERSTITIAL LUNG DISEASE
     Route: 048
  40. HOKUNALIN [Concomitant]
     Indication: INTERSTITIAL LUNG DISEASE
     Route: 062
  41. XYLOCAINE [Concomitant]
     Indication: STOMATITIS
     Route: 049

REACTIONS (4)
  - INTERSTITIAL LUNG DISEASE [None]
  - NAUSEA [None]
  - NEUTROPHIL COUNT DECREASED [None]
  - VOMITING [None]
